FAERS Safety Report 5501188-1 (Version None)
Quarter: 2007Q4

REPORT INFORMATION
  Report Type: 
  Country: None (occurrence: None)
  Receive Date: 20071029
  Receipt Date: 20071017
  Transmission Date: 20080405
  Serious: Yes (Disabling)
  Sender: FDA-Public Use
  Company Number: JP-PFIZER INC-2007087494

PATIENT
  Age: 18 Year
  Sex: Female

DRUGS (7)
  1. ZYVOX [Suspect]
     Indication: STAPHYLOCOCCAL INFECTION
     Dosage: DAILY DOSE:1200MG
     Route: 042
     Dates: start: 20071016, end: 20071017
  2. GABAPENTIN [Concomitant]
  3. VALTREX [Concomitant]
  4. EXCEGRAN [Concomitant]
  5. CLOBAZAM [Concomitant]
  6. TEGRETOL [Concomitant]
  7. VANCOMYCIN [Concomitant]

REACTIONS (5)
  - CONVULSION [None]
  - HEADACHE [None]
  - MALAISE [None]
  - PYREXIA [None]
  - RASH [None]
